FAERS Safety Report 8137864-4 (Version None)
Quarter: 2012Q1

REPORT INFORMATION
  Report Type: 
  Country: None (occurrence: None)
  Receive Date: 20120215
  Receipt Date: 20120203
  Transmission Date: 20120608
  Serious: Yes (Hospitalization, Other)
  Sender: FDA-Public Use
  Company Number: US-SANOFI-AVENTIS-2012SA007920

PATIENT
  Sex: Male

DRUGS (2)
  1. AMARYL [Suspect]
  2. METFORMIN HCL [Suspect]

REACTIONS (1)
  - CEREBROVASCULAR ACCIDENT [None]
